FAERS Safety Report 19236813 (Version 1)
Quarter: 2021Q2

REPORT INFORMATION
  Report Type: Spontaneous
  Country: US (occurrence: US)
  Receive Date: 20210507
  Receipt Date: 20210507
  Transmission Date: 20210717
  Serious: Yes (Life-Threatening, Hospitalization)
  Sender: FDA-Public Use
  Company Number: None

PATIENT
  Age: 65 Year
  Sex: Female
  Weight: 59.4 kg

DRUGS (6)
  1. VRAYLAR [Suspect]
     Active Substance: CARIPRAZINE
     Indication: BIPOLAR DISORDER
     Dosage: ?          QUANTITY:1 TABLET(S);?
     Route: 048
     Dates: start: 20200812, end: 20201105
  2. SYNTHROID [Concomitant]
     Active Substance: LEVOTHYROXINE SODIUM
  3. DESMOPRESSIN [Concomitant]
     Active Substance: DESMOPRESSIN
  4. SEROQUEL [Concomitant]
     Active Substance: QUETIAPINE FUMARATE
  5. AMILORIDE [Concomitant]
     Active Substance: AMILORIDE
  6. BENZTROPINE. [Concomitant]
     Active Substance: BENZTROPINE

REACTIONS (4)
  - Parkinsonism [None]
  - Muscular weakness [None]
  - Parkinson^s disease [None]
  - Fall [None]

NARRATIVE: CASE EVENT DATE: 20201102
